FAERS Safety Report 5767394-6 (Version None)
Quarter: 2008Q2

REPORT INFORMATION
  Report Type: 
  Country: None (occurrence: None)
  Receive Date: 20080612
  Receipt Date: 20080606
  Transmission Date: 20081010
  Serious: Yes (Other)
  Sender: FDA-Public Use
  Company Number: B0524596A

PATIENT
  Age: 72 Year
  Sex: Female
  Weight: 58 kg

DRUGS (2)
  1. LAMICTAL [Suspect]
     Dosage: 100MG PER DAY
     Route: 048
     Dates: start: 20060901
  2. SURMONTIL [Concomitant]
     Dosage: 25MG PER DAY
     Route: 048
     Dates: start: 20040101

REACTIONS (3)
  - APHASIA [None]
  - DEMENTIA [None]
  - MENTAL IMPAIRMENT [None]
